FAERS Safety Report 5402149-3 (Version None)
Quarter: 2007Q3

REPORT INFORMATION
  Report Type: 
  Country: None (occurrence: None)
  Receive Date: 20070730
  Receipt Date: 20070724
  Transmission Date: 20080115
  Serious: Yes (Hospitalization)
  Sender: FDA-Public Use
  Company Number: SPV1-2007-03614

PATIENT
  Age: 76 Year
  Sex: Male
  Weight: 77.1 kg

DRUGS (3)
  1. CARBATROL [Suspect]
     Indication: EPILEPSY
     Dosage: 400 MG IN AM, 200 MG AT NOON, 400 MG IN PM, ORAL
     Route: 048
     Dates: start: 20030101, end: 20070711
  2. FLOMAX /0088901/ (MORNIFLUMATE) TABLET [Concomitant]
  3. SPIRONOLACTONE [Concomitant]

REACTIONS (5)
  - APHONIA [None]
  - CONSTIPATION [None]
  - DEHYDRATION [None]
  - DIARRHOEA [None]
  - WEIGHT DECREASED [None]
